FAERS Safety Report 4553901-8 (Version None)
Quarter: 2005Q1

REPORT INFORMATION
  Report Type: 
  Country: None (occurrence: None)
  Receive Date: 20050118
  Receipt Date: 20041104
  Transmission Date: 20050727
  Serious: Yes (Congenital Anomaly)
  Sender: FDA-Public Use
  Company Number: DE-ROCHE-385578

PATIENT
  Age: 23 Year
  Sex: Female
  Weight: 90 kg

DRUGS (2)
  1. XENICAL [Suspect]
     Route: 065
     Dates: start: 20020615
  2. DIPYRONE INJ [Concomitant]
     Indication: PAIN

REACTIONS (4)
  - ABORTION SPONTANEOUS [None]
  - CONGENITAL ANOMALY [None]
  - DRUG EXPOSURE DURING PREGNANCY [None]
  - HYDROCEPHALUS [None]
